FAERS Safety Report 20432715 (Version 1)
Quarter: 2022Q1

REPORT INFORMATION
  Report Type: Spontaneous
  Country: US (occurrence: US)
  Receive Date: 20220204
  Receipt Date: 20220204
  Transmission Date: 20220423
  Serious: No
  Sender: FDA-Public Use
  Company Number: US-drreddys-SPO/USA/22/0146431

PATIENT
  Sex: Female

DRUGS (2)
  1. HABITROL [Suspect]
     Active Substance: NICOTINE
     Indication: Product used for unknown indication
     Route: 062
  2. HABITROL [Concomitant]
     Active Substance: NICOTINE
     Indication: Tobacco user

REACTIONS (1)
  - Application site pain [Unknown]
